FAERS Safety Report 7902572-9 (Version None)
Quarter: 2011Q4

REPORT INFORMATION
  Report Type: 
  Country: None (occurrence: None)
  Receive Date: 20111108
  Receipt Date: 20111024
  Transmission Date: 20120403
  Serious: Yes (Other)
  Sender: FDA-Public Use
  Company Number: IN-WATSON-2011-18763

PATIENT

DRUGS (1)
  1. VALPROATE SODIUM [Suspect]
     Dosage: UNK
     Route: 064

REACTIONS (2)
  - LARGE FOR DATES BABY [None]
  - HYPOGLYCAEMIA [None]
